FAERS Safety Report 13025622 (Version 1)
Quarter: 2016Q4

REPORT INFORMATION
  Report Type: Spontaneous
  Country: RO (occurrence: RO)
  Receive Date: 20161214
  Receipt Date: 20161214
  Transmission Date: 20170207
  Serious: Yes (Other)
  Sender: FDA-Public Use
  Company Number: RO-SUN PHARMACEUTICAL INDUSTRIES LTD-2016RR-129273

PATIENT
  Age: 10 Year
  Sex: Male
  Weight: 31 kg

DRUGS (4)
  1. RISPERIDONE. [Suspect]
     Active Substance: RISPERIDONE
     Indication: AGGRESSION
     Dosage: 1 MG, DAILY
     Route: 065
  2. RISPERIDONE. [Suspect]
     Active Substance: RISPERIDONE
     Dosage: 1 MG, BID
     Route: 065
  3. RISPERIDONE. [Suspect]
     Active Substance: RISPERIDONE
     Indication: AGGRESSION
     Dosage: 0.75 MG, DAILY
     Route: 065
  4. PROPRANOLOL [Suspect]
     Active Substance: PROPRANOLOL\PROPRANOLOL HYDROCHLORIDE
     Indication: AKATHISIA
     Route: 065

REACTIONS (8)
  - Motor dysfunction [Unknown]
  - Constipation [Unknown]
  - Intestinal transit time decreased [Unknown]
  - Musculoskeletal stiffness [Unknown]
  - Extrapyramidal disorder [Unknown]
  - Psychomotor hyperactivity [Unknown]
  - Chorea [Recovered/Resolved]
  - Akathisia [Unknown]
